FAERS Safety Report 12960814 (Version 1)
Quarter: 2016Q4

REPORT INFORMATION
  Report Type: Spontaneous
  Country: US (occurrence: US)
  Receive Date: 20161121
  Receipt Date: 20161121
  Transmission Date: 20170207
  Serious: No
  Sender: FDA-Public Use
  Company Number: US-OTSUKA-2016_013010

PATIENT
  Age: 69 Year
  Sex: Female

DRUGS (4)
  1. NUEDEXTA [Suspect]
     Active Substance: DEXTROMETHORPHAN HYDROBROMIDE\QUINIDINE SULFATE
     Dosage: 1 DF, BID (1 CAPSULE BY MOUTH EVERY 12 HOURS)
     Route: 048
  2. NUEDEXTA [Suspect]
     Active Substance: DEXTROMETHORPHAN HYDROBROMIDE\QUINIDINE SULFATE
     Indication: AFFECT LABILITY
     Dosage: 1 DF, QD (TAKE 1 CAPSULE BY MOUTH DAILY FOR SEVEN DAYS)
     Route: 048
     Dates: start: 20160606
  3. RILUTEK [Concomitant]
     Active Substance: RILUZOLE
     Indication: AMYOTROPHIC LATERAL SCLEROSIS
     Dosage: 1 DF, BID (TAKE 1 TAB BY MOUTH 2 TIMES DAILY)
     Route: 048
     Dates: start: 20160606
  4. RILUTEK [Concomitant]
     Active Substance: RILUZOLE
     Indication: AFFECT LABILITY

REACTIONS (1)
  - Asthenia [Not Recovered/Not Resolved]

NARRATIVE: CASE EVENT DATE: 20160609
